FAERS Safety Report 19609048 (Version 1)
Quarter: 2021Q3

REPORT INFORMATION
  Report Type: Spontaneous
  Country: US (occurrence: US)
  Receive Date: 20210725
  Receipt Date: 20210725
  Transmission Date: 20211014
  Serious: Yes (Hospitalization)
  Sender: FDA-Public Use
  Company Number: None

PATIENT
  Age: 66 Year
  Sex: Female

DRUGS (2)
  1. ARIMIDEX [Concomitant]
     Active Substance: ANASTROZOLE
  2. CAPECITABINE. [Suspect]
     Active Substance: CAPECITABINE
     Indication: BREAST CANCER FEMALE
     Dosage: ?          OTHER FREQUENCY:BID 14 D, 7 D OFF;?
     Route: 048
     Dates: start: 20210524

REACTIONS (4)
  - Blood magnesium decreased [None]
  - Blood sodium decreased [None]
  - Nausea [None]
  - Blood potassium decreased [None]

NARRATIVE: CASE EVENT DATE: 20210714
